FAERS Safety Report 10263495 (Version 1)
Quarter: 2014Q2

REPORT INFORMATION
  Report Type: Spontaneous
  Country: US (occurrence: US)
  Receive Date: 20140626
  Receipt Date: 20140626
  Transmission Date: 20141212
  Serious: Yes (Other)
  Sender: FDA-Public Use
  Company Number: US-TEVA-490495USA

PATIENT
  Sex: Female

DRUGS (1)
  1. SEASONIQUE [Suspect]
     Indication: CONTRACEPTION

REACTIONS (3)
  - Pregnancy on oral contraceptive [Recovered/Resolved]
  - Abortion spontaneous [Recovered/Resolved]
  - Depression [Unknown]
